FAERS Safety Report 21837349 (Version 1)
Quarter: 2023Q1

REPORT INFORMATION
  Report Type: Spontaneous
  Country: GB (occurrence: GB)
  Receive Date: 20230109
  Receipt Date: 20230109
  Transmission Date: 20230418
  Serious: Yes (Hospitalization)
  Sender: FDA-Public Use
  Company Number: None

PATIENT
  Age: 86 Year
  Sex: Female

DRUGS (10)
  1. OMEPRAZOLE [Suspect]
     Active Substance: OMEPRAZOLE
     Dosage: 20MG GASTRO-RESISTANT CAPSULES, ONE TO BE TAKEN EACH DAY,28 CAPSULE
  2. ALLOPURINOL [Concomitant]
     Active Substance: ALLOPURINOL
     Dosage: 100MG TABLETS, ONE TO BE TAKEN EACH DAY AFTER FOOD,28 TABLET
  3. ATORVASTATIN [Concomitant]
     Active Substance: ATORVASTATIN
     Dosage: 20MG TABLETS, TAKE ONE TABLET AT NIGHT, AVOID GRAPEFRUIT JUICE,28 TABLET
  4. CITALOPRAM [Concomitant]
     Active Substance: CITALOPRAM HYDROBROMIDE
     Dosage: 10MG TABLETS, ONE TO BE TAKEN EACH DAY,28 TABLET
  5. DOCUSATE [Concomitant]
     Active Substance: DOCUSATE
     Indication: Constipation
     Dosage: 100MG CAPSULES, TWO TO BE TAKEN TWICE A DAY IN MORNING AND NIGHT WHEN REQUIRED FOR CONSTIPATION,5...
  6. METOPROLOL [Concomitant]
     Active Substance: METOPROLOL
     Dosage: 50MG TABLETS, ONE TO BE TAKEN EACH DAY,28 TABLET
  7. NITROFURANTOIN [Concomitant]
     Active Substance: NITROFURANTOIN
     Indication: Prophylaxis
     Dosage: 50MG TABLETS, ONE DAILY AT NIGHT AS PROPHYLACTIC ANTIBIOTIC FOR UTI,28 TABLET
  8. VALPROATE SODIUM [Concomitant]
     Active Substance: VALPROATE SODIUM
     Dosage: 300MG MODIFIED-RELEASE TABLETS, ONE TO BE TAKEN TWICE A DAY IN THE MORNING AND ATNIGHT,56 TABLET
  9. CHOLECALCIFEROL [Concomitant]
     Active Substance: CHOLECALCIFEROL
     Dosage: 400UNIT / CALCIUM CARBONATE 1.5G CHEWABLE TABLETS, ONE TO BE TAKEN TWICE A DAY IN THEMORNING AND ...
  10. SENNA [Concomitant]
     Active Substance: SENNA LEAF\SENNOSIDES\SENNOSIDES A AND B
     Dosage: 7.5MG TABLETS, TWO TO BE TAKEN AT NIGHT WHEN REQUIRED FOR CONSTIPATION,56 TABLET

REACTIONS (1)
  - Hyponatraemia [Recovered/Resolved]
